FAERS Safety Report 25996151 (Version 1)
Quarter: 2025Q4

REPORT INFORMATION
  Report Type: Spontaneous
  Country: MA (occurrence: MA)
  Receive Date: 20251104
  Receipt Date: 20251104
  Transmission Date: 20260117
  Serious: Yes (Hospitalization, Other)
  Sender: ADMA BIOLOGICS
  Company Number: MA-ADMA BIOLOGICS INC.-MA-2025ADM000347

PATIENT
  Age: 63 Year
  Sex: Male

DRUGS (1)
  1. HUMAN IMMUNOGLOBULIN G [Suspect]
     Active Substance: HUMAN IMMUNOGLOBULIN G
     Indication: Guillain-Barre syndrome
     Dosage: 0.4 GRAM PER KILOGRAM, QD, OVER 5 DAYS
     Route: 042

REACTIONS (4)
  - Henoch-Schonlein purpura [Recovered/Resolved]
  - Acute kidney injury [Recovered/Resolved]
  - False positive investigation result [Unknown]
  - Off label use [Unknown]
